FAERS Safety Report 8203928-X (Version None)
Quarter: 2012Q1

REPORT INFORMATION
  Report Type: 
  Country: None (occurrence: None)
  Receive Date: 20120313
  Receipt Date: 20120305
  Transmission Date: 20120608
  Serious: Yes (Other)
  Sender: FDA-Public Use
  Company Number: US-BAYER-2012-019972

PATIENT
  Age: 32 Year
  Sex: Female

DRUGS (10)
  1. KLONOPIN [Concomitant]
     Dosage: 1/4 OF 0.5 MG
  2. PAXIL [Concomitant]
     Dosage: 10 MG, UNK
  3. METFORMIN HCL [Concomitant]
     Dosage: 1000 MG, UNK
     Dates: start: 20090803, end: 20091117
  4. DROSPIRENONE AND ETHINYL ESTRADIOL [Suspect]
  5. NEXIUM [Concomitant]
     Dosage: 40 MG, UNK
  6. YAZ [Suspect]
  7. VITAMIN D [Concomitant]
     Dosage: 50000 IU, UNK
     Dates: start: 20091216
  8. PAROXETINE [Concomitant]
  9. TOPIRAMATE [Concomitant]
     Dosage: 50 MG, UNK
     Dates: start: 20090430, end: 20091013
  10. ZOLPIDEM TARTRATE [Concomitant]
     Dosage: 10 MG, UNK
     Dates: start: 20080730, end: 20091222

REACTIONS (3)
  - PAIN [None]
  - DEEP VEIN THROMBOSIS [None]
  - PULMONARY EMBOLISM [None]
